FAERS Safety Report 11701815 (Version 2)
Quarter: 2016Q4

REPORT INFORMATION
  Report Type: Spontaneous
  Country: US (occurrence: US)
  Receive Date: 20151105
  Receipt Date: 20161206
  Transmission Date: 20170206
  Serious: No
  Sender: FDA-Public Use
  Company Number: US-MALLINCKRODT-T201504196

PATIENT
  Age: 50 Year
  Sex: Female
  Weight: 48 kg

DRUGS (6)
  1. FENTANYL TRANSDERMAL SYSTEM [Suspect]
     Active Substance: FENTANYL
     Dosage: 50 MCG/HR, EVERY TWO DAYS
     Route: 062
     Dates: start: 2015
  2. PERCOCET [Concomitant]
     Active Substance: ACETAMINOPHEN\OXYCODONE HYDROCHLORIDE
  3. FENTANYL TRANSDERMAL SYSTEM [Suspect]
     Active Substance: FENTANYL
     Indication: PAIN
     Dosage: 25 MCG/HR, Q72H
     Route: 062
     Dates: start: 201508, end: 20150831
  4. FENTANYL TRANSDERMAL SYSTEM [Suspect]
     Active Substance: FENTANYL
     Dosage: 100 MCG/HR, Q72H
     Route: 062
  5. FENTANYL TRANSDERMAL SYSTEM [Suspect]
     Active Substance: FENTANYL
     Dosage: 50 MCG/HR, Q72H
     Route: 062
     Dates: start: 20150831
  6. IBUPROFEN. [Concomitant]
     Active Substance: IBUPROFEN

REACTIONS (7)
  - Drug effect decreased [Unknown]
  - Incorrect dose administered [Unknown]
  - Therapy cessation [Unknown]
  - Wrong technique in product usage process [Recovered/Resolved]
  - Drug ineffective [Recovering/Resolving]
  - Overdose [Recovered/Resolved]
  - Product adhesion issue [Recovered/Resolved]

NARRATIVE: CASE EVENT DATE: 201508
